FAERS Safety Report 5920033-3 (Version None)
Quarter: 2008Q4

REPORT INFORMATION
  Report Type: 
  Country: None (occurrence: None)
  Receive Date: 20081014
  Receipt Date: 20080929
  Transmission Date: 20090506
  Serious: No
  Sender: FDA-Public Use
  Company Number: US024769

PATIENT
  Sex: Female

DRUGS (3)
  1. FENTORA [Suspect]
     Indication: BONE NEOPLASM MALIGNANT
     Dosage: 400 UG EVERY 6 HOURS BUCCAL
     Route: 002
     Dates: start: 20080908
  2. FENTORA [Suspect]
     Indication: CANCER PAIN
     Dosage: 400 UG EVERY 6 HOURS BUCCAL
     Route: 002
     Dates: start: 20080908
  3. MORPHINE [Concomitant]

REACTIONS (4)
  - CIRCUMSTANCE OR INFORMATION CAPABLE OF LEADING TO MEDICATION ERROR [None]
  - DRUG INEFFECTIVE [None]
  - DRUG PRESCRIBING ERROR [None]
  - GINGIVAL BLISTER [None]
